FAERS Safety Report 15407417 (Version 1)
Quarter: 2018Q3

REPORT INFORMATION
  Report Type: Spontaneous
  Country: US (occurrence: US)
  Receive Date: 20180920
  Receipt Date: 20180920
  Transmission Date: 20181010
  Serious: No
  Sender: FDA-Public Use
  Company Number: US-AMARIN PHARMA, INC.-2017AMR000237

PATIENT
  Age: 77 Year
  Sex: Male
  Weight: 90.8 kg

DRUGS (6)
  1. SERTRALINE [Concomitant]
     Active Substance: SERTRALINE HYDROCHLORIDE
     Indication: IMPATIENCE
  2. THYROID PILL [Concomitant]
     Indication: THYROID THERAPY
  3. BAYER LOW DOSE [Concomitant]
     Active Substance: ASPIRIN
     Indication: PROPHYLAXIS
  4. VITAMIN D [Concomitant]
     Active Substance: CHOLECALCIFEROL
     Indication: PRODUCT USED FOR UNKNOWN INDICATION
  5. VITAMIN B12 [Concomitant]
     Active Substance: CYANOCOBALAMIN
     Indication: PRODUCT USED FOR UNKNOWN INDICATION
  6. VASCEPA [Suspect]
     Active Substance: ICOSAPENT ETHYL
     Indication: DIABETES MELLITUS
     Route: 048
     Dates: start: 2017

REACTIONS (5)
  - Intentional underdose [Not Recovered/Not Resolved]
  - Dizziness [Not Recovered/Not Resolved]
  - Off label use [Recovered/Resolved]
  - Hot flush [Recovered/Resolved]
  - Vertigo [Not Recovered/Not Resolved]

NARRATIVE: CASE EVENT DATE: 20180701
